FAERS Safety Report 20137901 (Version 2)
Quarter: 2021Q4

REPORT INFORMATION
  Report Type: Spontaneous
  Country: US (occurrence: US)
  Receive Date: 20211202
  Receipt Date: 20211225
  Transmission Date: 20220303
  Serious: No
  Sender: FDA-Public Use
  Company Number: US-JNJFOC-20211164422

PATIENT
  Age: 67 Year
  Sex: Male

DRUGS (1)
  1. DARZALEX [Suspect]
     Active Substance: DARATUMUMAB
     Indication: Product used for unknown indication
     Route: 065

REACTIONS (6)
  - Infusion related reaction [Unknown]
  - Sneezing [Unknown]
  - Headache [Unknown]
  - Nasal congestion [Unknown]
  - Dizziness [Unknown]
  - Cough [Unknown]
